FAERS Safety Report 22223648 (Version 2)
Quarter: 2023Q2

REPORT INFORMATION
  Report Type: Spontaneous
  Country: US (occurrence: US)
  Receive Date: 20230418
  Receipt Date: 20230420
  Transmission Date: 20230722
  Serious: No
  Sender: FDA-Public Use
  Company Number: US-SANOFI-01576633

PATIENT
  Age: 22 Year
  Sex: Female

DRUGS (5)
  1. DUPIXENT [Suspect]
     Active Substance: DUPILUMAB
     Indication: Eczema
     Dosage: 600 MG, 1X
     Route: 058
     Dates: start: 20220506, end: 20220506
  2. DUPIXENT [Suspect]
     Active Substance: DUPILUMAB
     Indication: Dermatitis atopic
     Dosage: 300 MG, QOW
     Dates: end: 20230213
  3. AQUAPHOR (XIPAMIDE) [Concomitant]
     Active Substance: XIPAMIDE
     Dosage: UNK
  4. VISINE [TETRYZOLINE HYDROCHLORIDE] [Concomitant]
     Dosage: UNK
  5. AQUAPHOR [WHITE SOFT PARAFFIN] [Concomitant]

REACTIONS (12)
  - Astigmatism [Unknown]
  - Eyelid margin crusting [Unknown]
  - Strabismus [Not Recovered/Not Resolved]
  - Condition aggravated [Unknown]
  - Multiple allergies [Unknown]
  - Myopia [Unknown]
  - Eyelid skin dryness [Unknown]
  - Application site pain [Unknown]
  - Vision blurred [Not Recovered/Not Resolved]
  - Skin exfoliation [Unknown]
  - Pain of skin [Unknown]
  - Dermatitis atopic [Unknown]
